FAERS Safety Report 9284481 (Version 4)
Quarter: 2013Q4

REPORT INFORMATION
  Report Type: Spontaneous
  Country: US (occurrence: US)
  Receive Date: 20130510
  Receipt Date: 20131206
  Transmission Date: 20140711
  Serious: Yes (Other)
  Sender: FDA-Public Use
  Company Number: CHPA2013US007340

PATIENT
  Age: 80 Year
  Sex: Female

DRUGS (2)
  1. DESENEX PRESCSTRENGTH AF/UNK SPRAYPOWDER [Suspect]
     Dosage: UNK, UNK
     Dates: start: 20130426, end: 20130426
  2. GAS-X UNKNOWN [Suspect]
     Dosage: UNK

REACTIONS (2)
  - Asthma [Unknown]
  - Cough [Recovering/Resolving]
